FAERS Safety Report 7040049-6 (Version None)
Quarter: 2010Q4

REPORT INFORMATION
  Report Type: 
  Country: None (occurrence: None)
  Receive Date: 20101012
  Receipt Date: 20100928
  Transmission Date: 20110411
  Serious: Yes (Hospitalization, Other)
  Sender: FDA-Public Use
  Company Number: PHHY2010BE63820

PATIENT
  Age: 59 Year
  Sex: Female

DRUGS (2)
  1. AFINITOR [Suspect]
     Indication: RENAL CELL CARCINOMA
     Dosage: 5 MG, UNK
     Route: 048
  2. ZOMETA [Suspect]
     Dosage: UNK
     Dates: end: 20100901

REACTIONS (5)
  - BLOOD CREATININE INCREASED [None]
  - DIABETES MELLITUS [None]
  - RENAL FAILURE [None]
  - RENAL IMPAIRMENT [None]
  - URINARY TRACT INFECTION [None]
